FAERS Safety Report 19695645 (Version 1)
Quarter: 2021Q3

REPORT INFORMATION
  Report Type: Spontaneous
  Country: US (occurrence: US)
  Receive Date: 20210812
  Receipt Date: 20210812
  Transmission Date: 20211014
  Serious: No
  Sender: FDA-Public Use
  Company Number: US-BIOMARINAP-US-2021-137899

PATIENT
  Age: 15 Year
  Sex: Male
  Weight: 48 kg

DRUGS (1)
  1. VIMIZIM [Suspect]
     Active Substance: ELOSULFASE ALFA
     Indication: MUCOPOLYSACCHARIDOSIS IV
     Dosage: 100 MILLIGRAM, QW
     Route: 042
     Dates: start: 20210112

REACTIONS (2)
  - Rash papular [Unknown]
  - Rash erythematous [Unknown]

NARRATIVE: CASE EVENT DATE: 20210802
